FAERS Safety Report 7344476-9 (Version None)
Quarter: 2011Q1

REPORT INFORMATION
  Report Type: 
  Country: None (occurrence: None)
  Receive Date: 20110310
  Receipt Date: 20110304
  Transmission Date: 20110831
  Serious: Yes (Hospitalization)
  Sender: FDA-Public Use
  Company Number: DE-GENZYME-CAMP-1001444

PATIENT
  Sex: Male
  Weight: 75 kg

DRUGS (6)
  1. TAZOBAC [Concomitant]
     Indication: PNEUMONIA
     Dosage: UNK
     Dates: start: 20110201, end: 20110218
  2. CAMPATH [Suspect]
     Indication: CHRONIC LYMPHOCYTIC LEUKAEMIA
     Dosage: 30 MG, 3X/W
     Route: 058
     Dates: start: 20101115, end: 20110204
  3. KEPINOL [Concomitant]
     Indication: PRODUCT USED FOR UNKNOWN INDICATION
  4. NEULASTA [Suspect]
     Indication: NEUTROPENIA
     Dosage: 6 MG, QD
     Route: 058
     Dates: start: 20101115, end: 20110124
  5. VALTREX [Concomitant]
     Indication: PRODUCT USED FOR UNKNOWN INDICATION
  6. DEXAMETHASONE [Suspect]
     Indication: CHRONIC LYMPHOCYTIC LEUKAEMIA
     Dosage: 40 MG, QD
     Route: 048
     Dates: start: 20101115, end: 20110127

REACTIONS (3)
  - PYREXIA [None]
  - PNEUMONIA [None]
  - PLEURAL DISORDER [None]
